FAERS Safety Report 10272669 (Version 1)
Quarter: 2014Q2

REPORT INFORMATION
  Report Type: Spontaneous
  Country: US (occurrence: None)
  Receive Date: 20140630
  Receipt Date: 20140630
  Transmission Date: 20141212
  Serious: Yes (Death, Other)
  Sender: FDA-Public Use
  Company Number: SYM-2014-22448

PATIENT
  Age: 67 Year
  Sex: Female

DRUGS (2)
  1. XENAZINE [Suspect]
     Indication: DYSKINESIA
     Dosage: 6 DOSAGE FORMS, 6 IN 1 D, ORAL
     Route: 048
     Dates: start: 201201, end: 20140224
  2. XENAZINE [Suspect]
     Indication: DYSKINESIA
     Dosage: 6 DOSAGE FORMS, 6 IN 1 D, ORAL
     Route: 048
     Dates: start: 201201, end: 20140224

REACTIONS (1)
  - Death [None]
